FAERS Safety Report 7840900-3 (Version None)
Quarter: 2011Q4

REPORT INFORMATION
  Report Type: 
  Country: None (occurrence: None)
  Receive Date: 20111021
  Receipt Date: 20111021
  Transmission Date: 20120403
  Serious: Yes (Hospitalization)
  Sender: FDA-Public Use
  Company Number: None

PATIENT
  Sex: Male
  Weight: 86.1834 kg

DRUGS (1)
  1. LYRICA [Suspect]
     Indication: NEUROPATHY PERIPHERAL
     Dosage: 1 PILL 50 MG 2 X DAY
     Dates: start: 20110701, end: 20110901

REACTIONS (2)
  - LOSS OF CONTROL OF LEGS [None]
  - ATAXIA [None]
